FAERS Safety Report 8008237 (Version 2)
Quarter: 2014Q2

REPORT INFORMATION
  Report Type: Spontaneous
  Country: FR (occurrence: None)
  Receive Date: 20110609
  Receipt Date: 20140416
  Transmission Date: 20141212
  Serious: Yes (Hospitalization)
  Sender: FDA-Public Use
  Company Number: AUR-APL-2011-02573

PATIENT
  Age: 74 Year
  Sex: Female

DRUGS (5)
  1. LOSARTAN POTASSIUM [Suspect]
     Indication: INFECTION
     Dosage: 1DF-DAILY-ORAL
     Route: 048
     Dates: start: 20110430, end: 20110507
  2. CORDARONE [Suspect]
     Indication: TACHYCARDIA
     Dosage: 200MG-DAILY-ORAL
     Route: 048
     Dates: start: 20110505
  3. ERYTHROMYCIN STEARATE [Suspect]
     Indication: PYREXIA
     Dosage: 1DF-TID-INTRAVENOUS
     Route: 042
     Dates: start: 20110507
  4. PIRIBEDIL [Suspect]
     Dosage: 2DF-DAILY-ORAL
     Route: 048
     Dates: start: 20110503, end: 20110507
  5. NOVOMIX [Suspect]
     Dosage: 44II-DAILY-SUBCUTANEOUS
     Route: 058
     Dates: start: 20110506

REACTIONS (5)
  - Hyperthermia [None]
  - Tachycardia [None]
  - Infection [None]
  - Hypotonia [None]
  - Oral disorder [None]
